FAERS Safety Report 10503607 (Version 3)
Quarter: 2015Q1

REPORT INFORMATION
  Report Type: Report from Study
  Country: IL (occurrence: IL)
  Receive Date: 20141008
  Receipt Date: 20150225
  Transmission Date: 20150720
  Serious: Yes (Hospitalization, Other)
  Sender: FDA-Public Use
  Company Number: PHHY2014IL127388

PATIENT
  Age: 46 Year
  Sex: Male

DRUGS (3)
  1. GLUCOMIN [Concomitant]
     Active Substance: METFORMIN HYDROCHLORIDE
     Indication: DIABETES MELLITUS
     Route: 065
  2. SANDOSTATIN LAR DEPOT [Suspect]
     Active Substance: OCTREOTIDE ACETATE
     Indication: ACROMEGALY
     Dosage: 40 MG, Q4W
     Route: 030
     Dates: start: 20100207
  3. LOTAN//LOSARTAN POTASSIUM [Concomitant]
     Indication: HYPERTENSION
     Route: 065

REACTIONS (2)
  - Blindness [Not Recovered/Not Resolved]
  - Visual impairment [Unknown]

NARRATIVE: CASE EVENT DATE: 20140916
